FAERS Safety Report 8318235-4 (Version None)
Quarter: 2012Q2

REPORT INFORMATION
  Report Type: 
  Country: None (occurrence: None)
  Receive Date: 20120427
  Receipt Date: 20120418
  Transmission Date: 20120825
  Serious: Yes (Other)
  Sender: FDA-Public Use
  Company Number: US-JNJFOC-20120408832

PATIENT
  Sex: Female
  Weight: 63.5 kg

DRUGS (3)
  1. FENTANYL-100 [Suspect]
     Route: 062
     Dates: end: 20100101
  2. FENTANYL CITRATE [Suspect]
     Indication: PAIN
     Route: 062
     Dates: start: 20110101
  3. FENTANYL-100 [Suspect]
     Indication: PAIN
     Route: 062
     Dates: start: 20070101, end: 20080101

REACTIONS (4)
  - LIMB OPERATION [None]
  - HYPERHIDROSIS [None]
  - WRONG TECHNIQUE IN DRUG USAGE PROCESS [None]
  - DRUG ADMINISTERED AT INAPPROPRIATE SITE [None]
